FAERS Safety Report 7201473-1 (Version None)
Quarter: 2010Q4

REPORT INFORMATION
  Report Type: 
  Country: None (occurrence: None)
  Receive Date: 20101229
  Receipt Date: 20101224
  Transmission Date: 20110411
  Serious: Yes (Hospitalization)
  Sender: FDA-Public Use
  Company Number: US-BRISTOL-MYERS SQUIBB COMPANY-15451438

PATIENT
  Age: 39 Year
  Sex: Male

DRUGS (3)
  1. SOTALOL HCL [Suspect]
     Indication: VENTRICULAR TACHYCARDIA
  2. PROCAINAMIDE HCL [Suspect]
     Indication: VENTRICULAR TACHYCARDIA
  3. AMIODARONE HCL [Suspect]
     Indication: VENTRICULAR TACHYCARDIA

REACTIONS (6)
  - ATRIOVENTRICULAR BLOCK [None]
  - DIZZINESS [None]
  - GRAFT DYSFUNCTION [None]
  - NAUSEA [None]
  - SKIN DISCOLOURATION [None]
  - VISION BLURRED [None]
